FAERS Safety Report 8113580-X (Version None)
Quarter: 2012Q1

REPORT INFORMATION
  Report Type: 
  Country: None (occurrence: None)
  Receive Date: 20120203
  Receipt Date: 20120131
  Transmission Date: 20120608
  Serious: Yes (Other)
  Sender: FDA-Public Use
  Company Number: JP-PFIZER INC-2011308117

PATIENT
  Age: 68 Year
  Sex: Male
  Weight: 84 kg

DRUGS (3)
  1. WARFARIN [Interacting]
     Indication: ATRIAL FIBRILLATION
     Dosage: 3.5 MG/DAY
     Route: 048
     Dates: start: 20051008
  2. EPLERENONE [Suspect]
     Indication: HYPERTENSION
     Dosage: 50 MG, DAILY
     Route: 048
     Dates: start: 20100406
  3. WARFARIN [Interacting]
     Dosage: 3 MG/DAY
     Route: 048
     Dates: start: 20100601

REACTIONS (2)
  - DRUG INTERACTION [None]
  - INTERNATIONAL NORMALISED RATIO INCREASED [None]
